FAERS Safety Report 23959493 (Version 1)
Quarter: 2024Q2

REPORT INFORMATION
  Report Type: Spontaneous
  Country: US (occurrence: US)
  Receive Date: 20240611
  Receipt Date: 20240611
  Transmission Date: 20240716
  Serious: Yes (Hospitalization)
  Sender: FDA-Public Use
  Company Number: US-RISINGPHARMA-US-2024RISLIT00167

PATIENT
  Age: 58 Year
  Sex: Male

DRUGS (2)
  1. PROPARACAINE HYDROCHLORIDE [Suspect]
     Active Substance: PROPARACAINE HYDROCHLORIDE
     Indication: Eye pain
     Route: 061
  2. ERYTHROMYCIN [Concomitant]
     Active Substance: ERYTHROMYCIN
     Indication: Eye pain
     Route: 065

REACTIONS (2)
  - Keratopathy [Recovered/Resolved]
  - Product use issue [Unknown]
